FAERS Safety Report 8169364-X (Version None)
Quarter: 2012Q1

REPORT INFORMATION
  Report Type: 
  Country: None (occurrence: None)
  Receive Date: 20120222
  Receipt Date: 20120208
  Transmission Date: 20120608
  Serious: Yes (Other)
  Sender: FDA-Public Use
  Company Number: AUR-APL-2012-00992

PATIENT
  Age: 66 Year
  Sex: Female
  Weight: 76.64 kg

DRUGS (15)
  1. VENLAFAXINE [Suspect]
     Indication: DEPRESSION
     Dates: start: 20110101, end: 20110101
  2. EFFEXOR XR [Suspect]
  3. FISH OIL (FISH OIL) [Concomitant]
  4. HYDROXYCHLOROQUINE SULFATE [Concomitant]
  5. FOLIC ACID [Concomitant]
  6. CLONAZEPAM [Concomitant]
  7. LEVOTHYROXINE SODIUM [Concomitant]
  8. COENZYME Q10 [Concomitant]
  9. WELLBUTRIN [Suspect]
     Indication: DEPRESSION
     Dosage: 300 MG (100 MG, 3 IN 1 D)
     Dates: start: 20111101
  10. DEHYDROEPIANDROSTERONE (PRASTERONE) [Concomitant]
  11. PROZAC [Suspect]
     Indication: DEPRESSION
     Dosage: 60 MG (20 MG, 3 IN 1 D)
     Dates: start: 20111101
  12. OXYCONTIN [Concomitant]
  13. OXYCODONE HCL [Concomitant]
  14. ROPINIROLE [Concomitant]
  15. VITAMIN D [Concomitant]

REACTIONS (3)
  - PRODUCT SUBSTITUTION ISSUE [None]
  - ULCER [None]
  - DRUG INEFFECTIVE [None]
